FAERS Safety Report 22836823 (Version 2)
Quarter: 2023Q4

REPORT INFORMATION
  Report Type: Spontaneous
  Country: DE (occurrence: DE)
  Receive Date: 20230818
  Receipt Date: 20231106
  Transmission Date: 20240109
  Serious: Yes (Other)
  Sender: FDA-Public Use
  Company Number: None

PATIENT
  Sex: Female

DRUGS (8)
  1. AMLODIPINE [Suspect]
     Active Substance: AMLODIPINE BESYLATE
     Indication: Product used for unknown indication
     Dosage: 10 MILLIGRAM DAILY; 5 MG 1 IN THE MORNING 5 MG 1 EVENING IRREGULARLY IF NECESSARY
  2. PANTOPRAZOLE [Suspect]
     Active Substance: PANTOPRAZOLE
     Indication: Product used for unknown indication
     Dosage: 40 MILLIGRAM DAILY; 1X IN THE MORNING, FOR YEARS
  3. OXYCODONE [Suspect]
     Active Substance: OXYCODONE
     Indication: Product used for unknown indication
     Dosage: 40 MILLIGRAM DAILY; FOR YEARS MORNING 1
  4. OXYCODONE [Suspect]
     Active Substance: OXYCODONE
     Dosage: IF NECESSARY IN THE EVENING FOR YEARS
  5. BISOPROLOL [Suspect]
     Active Substance: BISOPROLOL\BISOPROLOL FUMARATE
     Indication: Product used for unknown indication
     Dosage: 5 MILLIGRAM DAILY; 1 IN THE MORNING
  6. HYDROCORTISONE [Suspect]
     Active Substance: HYDROCORTISONE
     Indication: Product used for unknown indication
     Dosage: 10 MILLIGRAM DAILY; 1 IN THE MORNING FOR YEARS
  7. ACETAMINOPHEN\CODEINE PHOSPHATE [Suspect]
     Active Substance: ACETAMINOPHEN\CODEINE PHOSPHATE
     Indication: Product used for unknown indication
     Dosage: 3-4X DAILY 1, FOR YEARS, FORM STRENGTH : 500MG/30MG
     Route: 065
  8. LEVOTHYROXINE SODIUM [Suspect]
     Active Substance: LEVOTHYROXINE SODIUM
     Indication: Product used for unknown indication
     Dosage: 75 MICROGRAM DAILY; 1 IN THE MORNING, FOR YEARS , L-THYROXIN HENNING 75

REACTIONS (7)
  - Blood pressure increased [Unknown]
  - Feeling abnormal [Unknown]
  - Oedema peripheral [Unknown]
  - Oedema peripheral [Unknown]
  - Fear of death [Unknown]
  - Tinnitus [Unknown]
  - Heart rate increased [Unknown]
